FAERS Safety Report 9065688 (Version 1)
Quarter: 2013Q1

REPORT INFORMATION
  Report Type: Spontaneous
  Country: US (occurrence: US)
  Receive Date: 20130214
  Receipt Date: 20130214
  Transmission Date: 20140127
  Serious: No
  Sender: FDA-Public Use
  Company Number: US-B.I. PHARMACEUTICALS,INC./RIDGEFIELD-2013-BI-04014BP

PATIENT
  Age: 68 None
  Sex: Female
  Weight: 57 kg

DRUGS (1)
  1. ZANTAC 150 (RANITIDINE HYDROCHLORIDE) [Suspect]
     Indication: DYSPEPSIA
     Route: 048
     Dates: start: 20130210, end: 20130210

REACTIONS (2)
  - Choking [Recovered/Resolved]
  - Product quality issue [Not Recovered/Not Resolved]
